FAERS Safety Report 9478916 (Version 1)
Quarter: 2013Q3

REPORT INFORMATION
  Report Type: Spontaneous
  Country: US (occurrence: US)
  Receive Date: 20130827
  Receipt Date: 20130827
  Transmission Date: 20140515
  Serious: Yes (Other)
  Sender: FDA-Public Use
  Company Number: US-BAXTER-2013BAX033799

PATIENT
  Sex: 0

DRUGS (2)
  1. 3% SODIUM CHLORIDE INJECTION [Suspect]
     Indication: INTRACRANIAL PRESSURE INCREASED
     Dosage: 5 ML/KG
     Route: 065
  2. 3% SODIUM CHLORIDE INJECTION [Suspect]
     Dosage: 1-3 ML/KG
     Route: 065

REACTIONS (2)
  - Anaemia [Recovered/Resolved]
  - Hypernatraemia [Unknown]
